FAERS Safety Report 7627416-4 (Version None)
Quarter: 2011Q3

REPORT INFORMATION
  Report Type: 
  Country: None (occurrence: None)
  Receive Date: 20110721
  Receipt Date: 20110719
  Transmission Date: 20111222
  Serious: No
  Sender: FDA-Public Use
  Company Number: US-PFIZER INC-2011163502

PATIENT
  Sex: Female

DRUGS (5)
  1. LISINOPRIL [Suspect]
     Dosage: UNK
  2. METFORMIN HCL [Suspect]
     Dosage: UNK
  3. ASPIRIN [Suspect]
     Dosage: UNK
  4. INSULIN [Suspect]
     Dosage: UNK
  5. GABAPENTIN [Suspect]
     Dosage: UNK

REACTIONS (4)
  - ABDOMINAL DISCOMFORT [None]
  - PAIN IN EXTREMITY [None]
  - SEDATION [None]
  - MALAISE [None]
